FAERS Safety Report 17941977 (Version 7)
Quarter: 2021Q4

REPORT INFORMATION
  Report Type: Other
  Country: CA (occurrence: CA)
  Receive Date: 20200625
  Receipt Date: 20211001
  Transmission Date: 20220303
  Serious: Yes (Other)
  Sender: FDA-Public Use
  Company Number: CA-ROCHE-2627582

PATIENT
  Age: 62 Year
  Sex: Male

DRUGS (4)
  1. OCREVUS [Suspect]
     Active Substance: OCRELIZUMAB
     Indication: Primary progressive multiple sclerosis
     Dosage: 300 MG AT DAY 0 AND 14, THEN 600 MG EVERY 6 MONTH,
     Route: 042
     Dates: start: 20200128
  2. OCREVUS [Suspect]
     Active Substance: OCRELIZUMAB
     Indication: Multiple sclerosis
     Dosage: 600 MG EVERY 6 MONTH, HOLD TREATMENT - POSTPONE FOR 3 WEEKS
     Route: 042
  3. LYRICA [Concomitant]
     Active Substance: PREGABALIN
     Dates: start: 20200618
  4. COVID-19 VACCINE [Concomitant]
     Dosage: 1ST DOSE ON 12/APR AND 2ND DOSE ON 30/AUG

REACTIONS (2)
  - Herpes zoster [Not Recovered/Not Resolved]
  - Keratitis [Recovered/Resolved]

NARRATIVE: CASE EVENT DATE: 20200614
